FAERS Safety Report 19046499 (Version 1)
Quarter: 2021Q1

REPORT INFORMATION
  Report Type: Spontaneous
  Country: GB (occurrence: GB)
  Receive Date: 20210323
  Receipt Date: 20210323
  Transmission Date: 20210420
  Serious: Yes (Other)
  Sender: FDA-Public Use
  Company Number: GB-ASTRAZENECA-2021A148416

PATIENT
  Age: 57 Year
  Sex: Female
  Weight: 70 kg

DRUGS (13)
  1. DUORESP SPIROMAX [Concomitant]
     Active Substance: BUDESONIDE\FORMOTEROL
     Indication: ILL-DEFINED DISORDER
  2. IVABRADINE [Concomitant]
     Active Substance: IVABRADINE
     Indication: ILL-DEFINED DISORDER
  3. LANSOPRAZOLE. [Concomitant]
     Active Substance: LANSOPRAZOLE
     Indication: ILL-DEFINED DISORDER
  4. FEMOSTON?CONTI [Concomitant]
     Active Substance: DYDROGESTERONE\ESTRADIOL
     Indication: ILL-DEFINED DISORDER
  5. ISOSORBIDE MONONITRATE. [Concomitant]
     Active Substance: ISOSORBIDE MONONITRATE
     Indication: ILL-DEFINED DISORDER
  6. NEBIVOLOL. [Concomitant]
     Active Substance: NEBIVOLOL
     Indication: ILL-DEFINED DISORDER
  7. VENTOLIN [Concomitant]
     Active Substance: ALBUTEROL SULFATE
     Indication: ILL-DEFINED DISORDER
  8. CLOTRIMAZOLE. [Concomitant]
     Active Substance: CLOTRIMAZOLE
     Dates: start: 20210218
  9. DAPAGLIFLOZIN. [Suspect]
     Active Substance: DAPAGLIFLOZIN
     Indication: CARDIAC FAILURE CHRONIC
     Route: 048
     Dates: start: 20210215, end: 20210218
  10. FUROSEMIDE. [Concomitant]
     Active Substance: FUROSEMIDE
     Indication: ILL-DEFINED DISORDER
  11. SPIROLACTONE [Concomitant]
     Active Substance: SPIRONOLACTONE
     Indication: ILL-DEFINED DISORDER
  12. METRONIDAZOLE. [Concomitant]
     Active Substance: METRONIDAZOLE
  13. FLUTICASONE FUROATE [Concomitant]
     Active Substance: FLUTICASONE FUROATE
     Indication: ILL-DEFINED DISORDER

REACTIONS (6)
  - Dyspnoea [Not Recovered/Not Resolved]
  - Vulvovaginitis [Not Recovered/Not Resolved]
  - Paraesthesia [Recovered/Resolved]
  - Vision blurred [Recovered/Resolved]
  - Hot flush [Recovered/Resolved]
  - Sleep disorder [Not Recovered/Not Resolved]

NARRATIVE: CASE EVENT DATE: 20210216
